FAERS Safety Report 8968013 (Version 3)
Quarter: 2013Q3

REPORT INFORMATION
  Report Type: Report from Study
  Country: CH (occurrence: CH)
  Receive Date: 20121218
  Receipt Date: 20130826
  Transmission Date: 20140515
  Serious: Yes (Hospitalization)
  Sender: FDA-Public Use
  Company Number: CH-BRISTOL-MYERS SQUIBB COMPANY-17195751

PATIENT
  Age: 58 Year
  Sex: Female

DRUGS (1)
  1. DASATINIB [Suspect]
     Indication: GASTROINTESTINAL STROMAL TUMOUR
     Dosage: 11AUG11-20APR12?12JUN-6AUG12?27AUG12-5DEC12
     Route: 048
     Dates: start: 20110811

REACTIONS (4)
  - Diarrhoea [Recovered/Resolved]
  - Hypocalcaemia [Recovered/Resolved]
  - Hypophosphataemia [Unknown]
  - Hypothyroidism [Unknown]
